FAERS Safety Report 14633053 (Version 1)
Quarter: 2018Q1

REPORT INFORMATION
  Report Type: Spontaneous
  Country: FR (occurrence: FR)
  Receive Date: 20180313
  Receipt Date: 20180313
  Transmission Date: 20180509
  Serious: Yes (Other)
  Sender: FDA-Public Use
  Company Number: FR-TEVA-2018-FR-867414

PATIENT
  Age: 76 Year
  Sex: Female
  Weight: 64 kg

DRUGS (3)
  1. PANTOPRAZOLE [Suspect]
     Active Substance: PANTOPRAZOLE
     Indication: GASTRITIS
     Route: 048
  2. METOJECT 15 MG/0,3 ML [Concomitant]
  3. SPECIAFOLDINE 5 MG, COMPR [Concomitant]

REACTIONS (1)
  - Neuropathy vitamin B12 deficiency [Recovering/Resolving]
